FAERS Safety Report 5506808-3 (Version None)
Quarter: 2007Q4

REPORT INFORMATION
  Report Type: 
  Country: None (occurrence: None)
  Receive Date: 20071105
  Receipt Date: 20071024
  Transmission Date: 20080405
  Serious: Yes (Other)
  Sender: FDA-Public Use
  Company Number: GB-PFIZER INC-2007090127

PATIENT

DRUGS (2)
  1. EPANUTIN SUSPENSION [Suspect]
  2. TPN [Interacting]

REACTIONS (3)
  - DRUG INTERACTION [None]
  - DRUG LEVEL DECREASED [None]
  - GASTROSTOMY TUBE INSERTION [None]
